FAERS Safety Report 10945100 (Version 2)
Quarter: 2015Q1

REPORT INFORMATION
  Report Type: Spontaneous
  Country: US (occurrence: None)
  Receive Date: 20150212
  Receipt Date: 20150212
  Transmission Date: 20150721
  Serious: No
  Sender: FDA-Public Use
  Company Number: TPA2010A05744

PATIENT
  Age: 81 Year
  Sex: Male
  Weight: 102.06 kg

DRUGS (5)
  1. BENICAR [Concomitant]
     Active Substance: OLMESARTAN MEDOXOMIL
  2. ULORIC [Suspect]
     Active Substance: FEBUXOSTAT
     Indication: GOUT
     Route: 048
     Dates: start: 201010
  3. WARFARIN (WARFARIN) [Concomitant]
     Active Substance: WARFARIN
  4. CARVEDILOL (CARVEDILOL) [Concomitant]
     Active Substance: CARVEDILOL
  5. DIGOXIN (DIGOXIN) [Concomitant]
     Active Substance: DIGOXIN

REACTIONS (1)
  - International normalised ratio decreased [None]

NARRATIVE: CASE EVENT DATE: 201010
